FAERS Safety Report 5193593-0 (Version None)
Quarter: 2006Q4

REPORT INFORMATION
  Report Type: 
  Country: None (occurrence: None)
  Receive Date: 20061228
  Receipt Date: 20060926
  Transmission Date: 20070319
  Serious: No
  Sender: FDA-Public Use
  Company Number: US-GLAXOSMITHKLINE-A0621467A

PATIENT
  Age: 50 Year
  Sex: Female

DRUGS (5)
  1. FLONASE [Suspect]
     Dosage: 2PUFF ALTERNATE DAYS
     Route: 045
     Dates: start: 20040101, end: 20060923
  2. CLARITIN [Concomitant]
  3. MORPHINE [Concomitant]
  4. PERCOCET [Concomitant]
  5. PROTONIX [Concomitant]

REACTIONS (2)
  - DYSPNOEA [None]
  - SINUSITIS [None]
